FAERS Safety Report 5113014-3 (Version None)
Quarter: 2006Q3

REPORT INFORMATION
  Report Type: 
  Country: None (occurrence: None)
  Receive Date: 20060921
  Receipt Date: 20060921
  Transmission Date: 20061208
  Serious: Yes (Hospitalization)
  Sender: FDA-Public Use
  Company Number: None

PATIENT
  Sex: Male
  Weight: 34.6 kg

DRUGS (3)
  1. REMODULIN [Suspect]
     Indication: PULMONARY HYPERTENSION
     Dosage: 21NG/KG/MIN @0.625 ML/HR CONTINUIOUS IV DRIP
     Route: 041
     Dates: start: 20060607, end: 20060718
  2. PLAVIX [Concomitant]
  3. REVATIO [Concomitant]

REACTIONS (4)
  - ABDOMINAL PAIN UPPER [None]
  - BLOOD CULTURE POSITIVE [None]
  - PYREXIA [None]
  - STENOTROPHOMONAS INFECTION [None]
